FAERS Safety Report 5014465-8 (Version None)
Quarter: 2006Q2

REPORT INFORMATION
  Report Type: 
  Country: None (occurrence: None)
  Receive Date: 20060531
  Receipt Date: 20060518
  Transmission Date: 20061013
  Serious: Yes (Other)
  Sender: FDA-Public Use
  Company Number: LU-JNJFOC-20060504746

PATIENT
  Sex: Male

DRUGS (1)
  1. CAELYX [Suspect]
     Indication: LYMPHOMA
     Route: 042

REACTIONS (4)
  - ANAEMIA [None]
  - CARDIOMYOPATHY [None]
  - ORTHOSTATIC HYPOTENSION [None]
  - PALMAR-PLANTAR ERYTHRODYSAESTHESIA SYNDROME [None]
